FAERS Safety Report 7626785-9 (Version None)
Quarter: 2011Q3

REPORT INFORMATION
  Report Type: 
  Country: None (occurrence: None)
  Receive Date: 20110721
  Receipt Date: 20110216
  Transmission Date: 20111222
  Serious: No
  Sender: FDA-Public Use
  Company Number: US-BAYER-2011-048487

PATIENT
  Age: 40 Year
  Sex: Female
  Weight: 81.633 kg

DRUGS (1)
  1. ALEVE (CAPLET) [Suspect]
     Indication: ANALGESIC THERAPY
     Dosage: 2 DF, BID, BOTTLE COUNT 50S
     Route: 048
     Dates: start: 20110216

REACTIONS (1)
  - PAIN [None]
